FAERS Safety Report 6649815-X (Version None)
Quarter: 2010Q1

REPORT INFORMATION
  Report Type: 
  Country: None (occurrence: None)
  Receive Date: 20100324
  Receipt Date: 20100310
  Transmission Date: 20100710
  Serious: Yes (Hospitalization)
  Sender: FDA-Public Use
  Company Number: FR-MYLANLABS-2010S1003938

PATIENT
  Age: 81 Year
  Sex: Male
  Weight: 74 kg

DRUGS (11)
  1. BUFLOMEDIL [Suspect]
     Indication: DRUG USE FOR UNKNOWN INDICATION
     Route: 048
     Dates: end: 20080916
  2. FUROSEMIDE [Suspect]
  3. MONOTILDIEM /00489701/ [Suspect]
     Route: 049
  4. ATACAND [Suspect]
     Dates: end: 20080916
  5. DAONIL [Concomitant]
     Indication: DIABETES MELLITUS
  6. PLAVIX [Concomitant]
     Indication: DRUG USE FOR UNKNOWN INDICATION
  7. BECOTIDE [Concomitant]
     Indication: DRUG USE FOR UNKNOWN INDICATION
  8. BRONCHODUAL [Concomitant]
     Indication: DRUG USE FOR UNKNOWN INDICATION
  9. SPIRIVA [Concomitant]
     Indication: DRUG USE FOR UNKNOWN INDICATION
  10. CASODEX [Concomitant]
     Indication: DRUG USE FOR UNKNOWN INDICATION
  11. ZOLADEX [Concomitant]
     Indication: DRUG USE FOR UNKNOWN INDICATION

REACTIONS (2)
  - CLONUS [None]
  - TREMOR [None]
